FAERS Safety Report 6881931-X (Version None)
Quarter: 2010Q3

REPORT INFORMATION
  Report Type: 
  Country: None (occurrence: None)
  Receive Date: 20100729
  Receipt Date: 20100715
  Transmission Date: 20110219
  Serious: Yes (Death, Other)
  Sender: FDA-Public Use
  Company Number: JP-JNJFOC-20090808500

PATIENT
  Age: 58 Year
  Sex: Female
  Weight: 24.95 kg

DRUGS (77)
  1. DOXORUBICIN HCL [Suspect]
     Indication: OVARIAN CANCER RECURRENT
     Route: 042
  2. MAGLAX [Concomitant]
     Indication: CONSTIPATION
     Route: 048
  3. TAKEPRON [Concomitant]
     Indication: PROPHYLAXIS
     Route: 048
  4. PRIMPERAN TAB [Concomitant]
     Indication: PROPHYLAXIS
     Route: 048
  5. MYSLEE [Concomitant]
     Indication: INSOMNIA
     Route: 048
  6. LOXOPROFEN SODIUM [Concomitant]
     Indication: PRODUCT USED FOR UNKNOWN INDICATION
     Route: 048
  7. DAI-KENCHU-TO [Concomitant]
     Indication: PRODUCT USED FOR UNKNOWN INDICATION
     Dosage: 3-6 DF PER DAY
     Route: 048
  8. HACHIAZULE [Concomitant]
     Indication: PROPHYLAXIS
     Dosage: 4-5 DF PER DAY
     Route: 048
  9. LECICARBON [Concomitant]
     Indication: CONSTIPATION
     Route: 054
  10. KENALOG [Concomitant]
     Indication: STOMATITIS
     Route: 049
  11. BECLOMETASONE DIPROPIONATE [Concomitant]
     Indication: STOMATITIS
     Route: 049
  12. HEPARIN [Concomitant]
     Indication: PROPHYLAXIS
     Route: 061
  13. SEISHOKU [Concomitant]
     Indication: PROPHYLAXIS
     Route: 042
  14. SEISHOKU [Concomitant]
     Route: 042
  15. SEISHOKU [Concomitant]
     Dosage: 50-100 ML/DAY
     Route: 042
  16. SEISHOKU [Concomitant]
     Route: 042
  17. SEISHOKU [Concomitant]
     Route: 042
  18. SEISHOKU [Concomitant]
     Route: 042
  19. SEISHOKU [Concomitant]
     Route: 042
  20. SEISHOKU [Concomitant]
     Route: 042
  21. SEISHOKU [Concomitant]
     Route: 042
  22. SEISHOKU [Concomitant]
     Route: 042
  23. SEISHOKU [Concomitant]
     Dosage: 50-100ML/DAY
     Route: 042
  24. SEISHOKU [Concomitant]
     Route: 042
  25. SEISHOKU [Concomitant]
     Indication: DECREASED APPETITE
     Dosage: 50-100ML/DAY
     Route: 042
  26. SEISHOKU [Concomitant]
     Dosage: 50-100 ML/DAY
     Route: 042
  27. SEISHOKU [Concomitant]
     Route: 042
  28. SEISHOKU [Concomitant]
     Route: 042
  29. SEISHOKU [Concomitant]
     Route: 042
  30. SEISHOKU [Concomitant]
     Route: 042
  31. SEISHOKU [Concomitant]
     Route: 042
  32. SEISHOKU [Concomitant]
     Route: 042
  33. SEISHOKU [Concomitant]
     Route: 042
  34. SEISHOKU [Concomitant]
     Route: 042
  35. SEISHOKU [Concomitant]
     Route: 042
  36. SEISHOKU [Concomitant]
     Route: 042
  37. BFLUID [Concomitant]
     Indication: STOMATITIS
     Dosage: 1000-2000ML
     Route: 041
  38. BFLUID [Concomitant]
     Dosage: 1000-2000ML
     Route: 041
  39. BFLUID [Concomitant]
     Dosage: 500-1000ML
     Route: 041
  40. BFLUID [Concomitant]
     Dosage: 1000-2000ML
     Route: 041
  41. VITAMEDIN [Concomitant]
     Indication: DECREASED APPETITE
     Route: 042
  42. VISCORIN [Concomitant]
     Indication: DECREASED APPETITE
     Route: 042
  43. FAMOTIDINE [Concomitant]
     Indication: PRODUCT USED FOR UNKNOWN INDICATION
     Route: 042
  44. ACETATED RINGER [Concomitant]
     Indication: DECREASED APPETITE
     Dosage: 50-100ML
     Route: 041
  45. LACTATED RINGER'S [Concomitant]
     Indication: DECREASED APPETITE
     Dosage: 100-200ML
     Route: 042
  46. LACTATED RINGER'S [Concomitant]
     Dosage: 100-200ML
     Route: 042
  47. ATARAX [Concomitant]
     Indication: PRODUCT USED FOR UNKNOWN INDICATION
     Route: 042
  48. SODIUM CHLORIDE [Concomitant]
     Indication: PRODUCT USED FOR UNKNOWN INDICATION
     Route: 042
  49. DUROTEP [Concomitant]
     Indication: PRODUCT USED FOR UNKNOWN INDICATION
     Dosage: 12.5MCG/HR- 50MCG/HR
     Route: 062
  50. DECADRON [Concomitant]
     Indication: PRODUCT USED FOR UNKNOWN INDICATION
     Dosage: 12.5MCG/HR- 50MCG/HR
     Route: 042
  51. CEFOPERAZONE SODIUM-SULBACTAM SODIUM [Concomitant]
     Indication: C-REACTIVE PROTEIN INCREASED
     Dosage: 1-2G PER DAY
     Route: 042
  52. CEFOPERAZONE SODIUM-SULBACTAM SODIUM [Concomitant]
     Route: 042
  53. CEFOPERAZONE SODIUM-SULBACTAM SODIUM [Concomitant]
     Dosage: 1-2G PER DAY
     Route: 042
  54. NEUTROGIN [Concomitant]
     Indication: WHITE BLOOD CELL COUNT DECREASED
     Route: 042
  55. SANDOSTATIN [Concomitant]
     Indication: ILEUS
     Route: 042
  56. CALCICOL [Concomitant]
     Indication: PRODUCT USED FOR UNKNOWN INDICATION
     Route: 042
  57. CALCICOL [Concomitant]
     Route: 042
  58. TEPRENONE [Concomitant]
     Indication: PROPHYLAXIS
     Route: 048
  59. MAGNESIUM OXIDE [Concomitant]
     Indication: CONSTIPATION
     Route: 048
  60. DEXTROSE [Concomitant]
     Indication: PROPHYLAXIS
     Route: 041
  61. DEXTROSE [Concomitant]
     Route: 041
  62. DEXTROSE [Concomitant]
     Indication: DECREASED APPETITE
     Route: 041
  63. DEXTROSE [Concomitant]
     Route: 041
  64. VOLVIX [Concomitant]
     Indication: DECREASED APPETITE
     Dosage: 1 DF
     Route: 041
  65. VITAJECT [Concomitant]
     Indication: DECREASED APPETITE
     Dosage: 1 DF
     Route: 041
  66. PN TWIN [Concomitant]
     Indication: DECREASED APPETITE
     Route: 041
  67. PN TWIN [Concomitant]
     Route: 041
  68. FENTANYL CITRATE [Concomitant]
     Indication: PRODUCT USED FOR UNKNOWN INDICATION
     Route: 042
  69. LASIX [Concomitant]
     Indication: RENAL IMPAIRMENT
     Route: 042
  70. LINTON [Concomitant]
     Indication: DELIRIUM
     Route: 042
  71. OMEPRAL [Concomitant]
     Indication: PRODUCT USED FOR UNKNOWN INDICATION
     Dosage: 20-40MG/DAY
     Route: 042
  72. SOLDEM 1 [Concomitant]
     Indication: DECREASED APPETITE
     Route: 041
  73. ROPION [Concomitant]
     Indication: PRODUCT USED FOR UNKNOWN INDICATION
     Route: 042
  74. PRIMPERAN TAB [Concomitant]
     Indication: NAUSEA
     Route: 042
  75. PRIMPERAN TAB [Concomitant]
     Route: 042
  76. PRIMPERAN TAB [Concomitant]
     Route: 042
  77. CONCENTRATED HUMAN RED BLOOD CELLS [Concomitant]
     Indication: ANAEMIA
     Dosage: 2 LU
     Route: 042

REACTIONS (3)
  - DELIRIUM [None]
  - ILEUS [None]
  - OVARIAN CANCER [None]
